FAERS Safety Report 24418515 (Version 3)
Quarter: 2025Q3

REPORT INFORMATION
  Report Type: Spontaneous
  Country: US (occurrence: US)
  Receive Date: 20241009
  Receipt Date: 20250816
  Transmission Date: 20251021
  Serious: No
  Sender: SANOFI AVENTIS
  Company Number: US-SA-2024SA288382

PATIENT
  Age: 3 Year
  Sex: Male

DRUGS (3)
  1. DUPIXENT [Suspect]
     Active Substance: DUPILUMAB
     Indication: Eczema
     Dosage: 300 MG, Q4W
     Route: 058
     Dates: start: 202407, end: 2024
  2. DUPIXENT [Suspect]
     Active Substance: DUPILUMAB
     Indication: Dermatitis atopic
     Dosage: 300 MG, Q4W
     Route: 058
     Dates: start: 20240823
  3. EPINEPHRINE [Concomitant]
     Active Substance: EPINEPHRINE

REACTIONS (7)
  - Food allergy [Unknown]
  - Cough [Recovered/Resolved]
  - Pyrexia [Recovered/Resolved]
  - Eczema [Recovering/Resolving]
  - Erythema [Unknown]
  - Pruritus [Unknown]
  - Product dose omission issue [Unknown]

NARRATIVE: CASE EVENT DATE: 20240101
